FAERS Safety Report 4727000-6 (Version None)
Quarter: 2005Q3

REPORT INFORMATION
  Report Type: 
  Country: None (occurrence: None)
  Receive Date: 20050726
  Receipt Date: 20050713
  Transmission Date: 20060218
  Serious: Yes (Hospitalization)
  Sender: FDA-Public Use
  Company Number: 198115

PATIENT
  Age: 64 Year
  Sex: Male

DRUGS (1)
  1. AVONEX [Suspect]
     Indication: MULTIPLE SCLEROSIS
     Dosage: 30 UG; QW; IM
     Route: 030
     Dates: start: 19980101

REACTIONS (7)
  - CATHETER RELATED COMPLICATION [None]
  - DYSURIA [None]
  - FALL [None]
  - MICTURITION URGENCY [None]
  - PROSTATECTOMY [None]
  - SPINAL CORD DRAINAGE [None]
  - URINARY RETENTION [None]
